FAERS Safety Report 5132238-2 (Version None)
Quarter: 2006Q4

REPORT INFORMATION
  Report Type: 
  Country: None (occurrence: None)
  Receive Date: 20061017
  Receipt Date: 20061006
  Transmission Date: 20070319
  Serious: No
  Sender: FDA-Public Use
  Company Number: 06H-163-0310697-00

PATIENT
  Age: 55 Year
  Sex: Female

DRUGS (1)
  1. VANCOMYCIN HCL [Suspect]
     Indication: BACTERAEMIA
     Dosage: 1 GM, ONCE, INTRAVENOUS
     Route: 042
     Dates: start: 20061005, end: 20061005

REACTIONS (4)
  - CONVULSION [None]
  - MUSCLE RIGIDITY [None]
  - PRURITUS [None]
  - RED MAN SYNDROME [None]
